FAERS Safety Report 4377983-1 (Version None)
Quarter: 2004Q2

REPORT INFORMATION
  Report Type: 
  Country: None (occurrence: None)
  Receive Date: 20040609
  Receipt Date: 20040527
  Transmission Date: 20050107
  Serious: Yes (Other)
  Sender: FDA-Public Use
  Company Number: 2004033763

PATIENT
  Age: 62 Year
  Sex: Male

DRUGS (1)
  1. SINEQUAN [Suspect]
     Indication: ILL-DEFINED DISORDER
     Dosage: 150 MG (1 IN 1 D), ORAL
     Route: 048

REACTIONS (7)
  - CHRONIC OBSTRUCTIVE AIRWAYS DISEASE [None]
  - DEPRESSED MOOD [None]
  - EXOSTOSIS [None]
  - MEDICATION ERROR [None]
  - NERVE COMPRESSION [None]
  - SCIATICA [None]
  - SUICIDAL IDEATION [None]
